FAERS Safety Report 7456254-0 (Version None)
Quarter: 2011Q2

REPORT INFORMATION
  Report Type: 
  Country: None (occurrence: None)
  Receive Date: 20110503
  Receipt Date: 20110419
  Transmission Date: 20111010
  Serious: Yes (Other)
  Sender: FDA-Public Use
  Company Number: GR-WATSON-2011-05705

PATIENT
  Age: 49 Year
  Sex: Female

DRUGS (2)
  1. ZOLPIDEM TARTRATE [Suspect]
     Dosage: 10 MG, DAILY
     Route: 065
  2. ZOLPIDEM TARTRATE [Suspect]
     Indication: INSOMNIA
     Dosage: 1500 MG, DAILY
     Route: 048

REACTIONS (3)
  - INTENTIONAL OVERDOSE [None]
  - DEPENDENCE [None]
  - DRUG WITHDRAWAL CONVULSIONS [None]
